FAERS Safety Report 16698923 (Version 4)
Quarter: 2020Q4

REPORT INFORMATION
  Report Type: Spontaneous
  Country: US (occurrence: US)
  Receive Date: 20190813
  Receipt Date: 20201003
  Transmission Date: 20210113
  Serious: Yes (Hospitalization, Other)
  Sender: FDA-Public Use
  Company Number: US-LEXICON PHARMACEUTICALS, INC-19-1606-00781

PATIENT
  Age: 57 Year
  Sex: Male

DRUGS (1)
  1. XERMELO [Suspect]
     Active Substance: TELOTRISTAT ETHYL
     Indication: CARCINOID TUMOUR
     Route: 048
     Dates: start: 20180307

REACTIONS (15)
  - Pain in extremity [Unknown]
  - Fall [Not Recovered/Not Resolved]
  - Spinal cord neoplasm [Unknown]
  - Diarrhoea [Unknown]
  - Contusion [Unknown]
  - Hypoaesthesia [Not Recovered/Not Resolved]
  - Lower limb fracture [Unknown]
  - Gait disturbance [Unknown]
  - Dental care [Unknown]
  - Neuropathy peripheral [Unknown]
  - Fall [Unknown]
  - Back pain [Not Recovered/Not Resolved]
  - Peripheral swelling [Recovering/Resolving]
  - Rib fracture [Unknown]
  - Intervertebral disc compression [Not Recovered/Not Resolved]

NARRATIVE: CASE EVENT DATE: 201907
